FAERS Safety Report 7361092-3 (Version None)
Quarter: 2011Q1

REPORT INFORMATION
  Report Type: 
  Country: None (occurrence: None)
  Receive Date: 20110318
  Receipt Date: 20110317
  Transmission Date: 20110831
  Serious: Yes (Hospitalization)
  Sender: FDA-Public Use
  Company Number: SE-ROCHE-764810

PATIENT
  Age: 68 Year
  Sex: Female

DRUGS (2)
  1. DEXIBUPROFEN [Concomitant]
     Dosage: DRUG: TRADIL
  2. XELODA [Suspect]
     Dosage: DOSE: 4 GMD
     Route: 048
     Dates: start: 20110216, end: 20110223

REACTIONS (3)
  - VOMITING [None]
  - DEHYDRATION [None]
  - RENAL FAILURE ACUTE [None]
